FAERS Safety Report 9355896 (Version 1)
Quarter: 2013Q2

REPORT INFORMATION
  Report Type: Spontaneous
  Country: JP (occurrence: JP)
  Receive Date: 20130619
  Receipt Date: 20130619
  Transmission Date: 20140414
  Serious: Yes (Death, Life-Threatening, Hospitalization, Other)
  Sender: FDA-Public Use
  Company Number: JP-ROCHE-1228181

PATIENT
  Age: 47 Year
  Sex: Female
  Weight: 43 kg

DRUGS (9)
  1. AVASTIN [Suspect]
     Indication: BREAST CANCER METASTATIC
     Dosage: TREATMENT LINE 1, COMPLETED TREATMENT CYCLE NUMBER : 1
     Route: 041
     Dates: start: 20130321, end: 20130424
  2. LOXOPROFEN [Suspect]
     Indication: CANCER PAIN
     Route: 048
     Dates: start: 20130308, end: 20130511
  3. NEXIUM [Concomitant]
     Indication: PROPHYLAXIS AGAINST GASTROINTESTINAL ULCER
     Route: 048
     Dates: start: 20130308, end: 20130401
  4. MAGMITT [Concomitant]
     Indication: CONSTIPATION
     Route: 048
     Dates: start: 20130308, end: 20130511
  5. OXYCONTIN [Concomitant]
     Indication: CANCER PAIN
     Route: 048
     Dates: start: 20130308, end: 20130315
  6. OXYCONTIN [Concomitant]
     Indication: CANCER PAIN
     Route: 048
     Dates: start: 20130316, end: 20130323
  7. OXYCONTIN [Concomitant]
     Indication: CANCER PAIN
     Route: 048
     Dates: start: 20130324, end: 20130515
  8. OXINORM (JAPAN) [Concomitant]
     Indication: CANCER PAIN
     Dosage: FOR TON
     Route: 048
     Dates: start: 20130308, end: 20130515
  9. PACLITAXEL [Concomitant]
     Indication: BREAST CANCER METASTATIC
     Route: 041
     Dates: start: 20130321, end: 20130501

REACTIONS (4)
  - Lymphangiosis carcinomatosa [Fatal]
  - Gastric ulcer haemorrhage [Recovering/Resolving]
  - Pneumonia [Unknown]
  - Pyrexia [Unknown]
